FAERS Safety Report 18405552 (Version 1)
Quarter: 2020Q4

REPORT INFORMATION
  Report Type: Other
  Country: CA (occurrence: CA)
  Receive Date: 20201020
  Receipt Date: 20201020
  Transmission Date: 20210114
  Serious: Yes (Other)
  Sender: FDA-Public Use
  Company Number: CA-BECTON DICKINSON-2020BDN00242

PATIENT
  Age: 42 Year
  Sex: Female
  Weight: 81 kg

DRUGS (23)
  1. OXYCODONE [Suspect]
     Active Substance: OXYCODONE
  2. REACTINE [Concomitant]
  3. ACTEMRA [Suspect]
     Active Substance: TOCILIZUMAB
  4. ARAVA [Suspect]
     Active Substance: LEFLUNOMIDE
  5. SIMPONI [Suspect]
     Active Substance: GOLIMUMAB
     Route: 058
  6. HYDROXYCHLOROQUINE [Concomitant]
     Active Substance: HYDROXYCHLOROQUINE
  7. IBUPROFEN. [Concomitant]
     Active Substance: IBUPROFEN
  8. OXYCODONE TEREPHTHALATE [Suspect]
     Active Substance: OXYCODONE TEREPHTHALATE
  9. PREDNISONE. [Concomitant]
     Active Substance: PREDNISONE
  10. VENTOLIN [Concomitant]
     Active Substance: ALBUTEROL SULFATE
  11. ORENCIA [Suspect]
     Active Substance: ABATACEPT
  12. OMEGA-3 ACIDS [Concomitant]
     Active Substance: OMEGA-3 FATTY ACIDS
  13. ZOPICLONE [Concomitant]
     Active Substance: ZOPICLONE
  14. ACETAMINOPHEN. [Suspect]
     Active Substance: ACETAMINOPHEN
  15. CIMZIA [Suspect]
     Active Substance: CERTOLIZUMAB PEGOL
     Indication: RHEUMATOID ARTHRITIS
     Dosage: 400 MG
     Route: 058
  16. ENBREL [Suspect]
     Active Substance: ETANERCEPT
     Indication: RHEUMATOID ARTHRITIS
     Route: 058
  17. CHOLECALCIFEROL [Concomitant]
     Active Substance: CHOLECALCIFEROL
  18. PANTOPRAZOLE [Concomitant]
     Active Substance: PANTOPRAZOLE
  19. CHLORHEXIDINE [Suspect]
     Active Substance: CHLORHEXIDINE
  20. VITAMIN C [Concomitant]
     Active Substance: ASCORBIC ACID
  21. METHOTREXATE. [Suspect]
     Active Substance: METHOTREXATE
  22. PERIOGARD [Suspect]
     Active Substance: CHLORHEXIDINE GLUCONATE
  23. TYLENOL [Concomitant]
     Active Substance: ACETAMINOPHEN

REACTIONS (21)
  - Abdominal pain upper [Unknown]
  - Back pain [Unknown]
  - Night sweats [Unknown]
  - Pain [Unknown]
  - Headache [Unknown]
  - Sinusitis [Unknown]
  - Contraindicated product administered [Unknown]
  - Insomnia [Unknown]
  - Peripheral swelling [Unknown]
  - Pruritus [Unknown]
  - Muscle spasticity [Unknown]
  - Respiratory disorder [Unknown]
  - Asthenia [Unknown]
  - Diarrhoea [Unknown]
  - Body temperature increased [Unknown]
  - Lower respiratory tract infection [Unknown]
  - Joint swelling [Unknown]
  - Rash [Unknown]
  - Vomiting [Unknown]
  - Ear pain [Unknown]
  - Urticaria [Unknown]
